FAERS Safety Report 9626854 (Version 1)
Quarter: 2013Q4

REPORT INFORMATION
  Report Type: Spontaneous
  Country: US (occurrence: None)
  Receive Date: 20131011
  Receipt Date: 20131011
  Transmission Date: 20140711
  Serious: Yes (Hospitalization)
  Sender: FDA-Public Use
  Company Number: FK201304469

PATIENT
  Age: 16 Year
  Sex: Male

DRUGS (8)
  1. PIPERACILLIN/TAZOBACTAM [Suspect]
     Indication: FEBRILE NEUTROPENIA
  2. ETOPOSIDE (ETOPOSIDE) [Concomitant]
  3. DAUNORUBICIN CYTARABINE (CYTARABINE) [Concomitant]
  4. CYTARABINE (CYTARABINE) [Concomitant]
  5. VANCOMYCIN (VANCOMYCIN) [Concomitant]
  6. VORICONAZOLE (VORICONAZOLE) [Concomitant]
  7. CASPOFUNGIN (GASPOFUGIN) [Concomitant]
  8. METHYLPREDNISOLONE (METHYLPREDNISOLONE) [Concomitant]

REACTIONS (9)
  - Drug eruption [None]
  - Drug hypersensitivity [None]
  - Haemodialysis [None]
  - Tubulointerstitial nephritis [None]
  - Nephropathy toxic [None]
  - Staphylococcal infection [None]
  - Vomiting [None]
  - Hypotension [None]
  - Febrile neutropenia [None]
